FAERS Safety Report 5693717-2 (Version None)
Quarter: 2008Q2

REPORT INFORMATION
  Report Type: 
  Country: None (occurrence: None)
  Receive Date: 20080403
  Receipt Date: 20080324
  Transmission Date: 20081010
  Serious: Yes (Hospitalization, Other)
  Sender: FDA-Public Use
  Company Number: JP-JNJFOC-20080203156

PATIENT
  Sex: Male
  Weight: 41 kg

DRUGS (10)
  1. REMICADE [Suspect]
     Route: 042
  2. REMICADE [Suspect]
     Route: 042
  3. REMICADE [Suspect]
     Route: 042
  4. REMICADE [Suspect]
     Route: 042
  5. REMICADE [Suspect]
     Indication: CROHN'S DISEASE
     Dosage: 3 INFUSIONS IN 2007 ON UNSPECIFIED DATES
     Route: 042
  6. ELENTAL [Concomitant]
     Route: 048
  7. PENTASA [Concomitant]
     Route: 048
  8. CINAL [Concomitant]
     Route: 048
  9. FERROMIA [Concomitant]
     Route: 048
  10. BIO THREE [Concomitant]
     Route: 048

REACTIONS (6)
  - DYSPNOEA [None]
  - FEELING COLD [None]
  - FLUSHING [None]
  - HYPERHIDROSIS [None]
  - INFUSION RELATED REACTION [None]
  - NAUSEA [None]
